FAERS Safety Report 6959752 (Version 4)
Quarter: 2012Q4

REPORT INFORMATION
  Report Type: 
  Country: DE (occurrence: DE)
  Receive Date: 20090403
  Receipt Date: 20120926
  Transmission Date: 20130627
  Serious: Yes (Death, Other)
  Sender: FDA-Public Use
  Company Number: DE-ROXANE LABORATORIES, INC.-2009-RO-00318RO

PATIENT
  Age: 3 Year
  Sex: Male
  Weight: 14 kg

DRUGS (7)
  1. CODEINE SULFATE [Suspect]
     Indication: ANTITUSSIVE THERAPY
  2. ACETAMINOPHEN [Suspect]
     Indication: COUGH
  3. ACETAMINOPHEN [Suspect]
     Indication: PYREXIA
  4. IBUPROFEN [Suspect]
     Indication: COUGH
  5. IBUPROFEN [Suspect]
     Indication: PYREXIA
  6. IVY EXTRACT [Suspect]
     Indication: COUGH
  7. IVY EXTRACT [Suspect]
     Indication: PYREXIA

REACTIONS (7)
  - Death [Fatal]
  - Toxicity to various agents [Unknown]
  - Drug administration error [Unknown]
  - Accidental overdose [Unknown]
  - Vomiting [Unknown]
  - Aspiration [Unknown]
  - Brain oedema [Unknown]
